FAERS Safety Report 4994731-2 (Version None)
Quarter: 2006Q2

REPORT INFORMATION
  Report Type: 
  Country: None (occurrence: None)
  Receive Date: 20060505
  Receipt Date: 20060426
  Transmission Date: 20061013
  Serious: Yes (Hospitalization, Other)
  Sender: FDA-Public Use
  Company Number: US-ABBOTT-06P-163-0331838-00

PATIENT
  Sex: Male

DRUGS (2)
  1. DEPAKOTE ER [Suspect]
     Indication: ANXIETY
     Route: 048
     Dates: start: 20051101, end: 20051130
  2. DEPAKOTE ER [Suspect]
     Route: 048
     Dates: start: 20051201

REACTIONS (4)
  - HALLUCINATION, AUDITORY [None]
  - HYPERSOMNIA [None]
  - MENTAL DISORDER [None]
  - PROSTATE CANCER [None]
